FAERS Safety Report 6598526-8 (Version None)
Quarter: 2010Q1

REPORT INFORMATION
  Report Type: 
  Country: None (occurrence: None)
  Receive Date: 20100224
  Receipt Date: 20050311
  Transmission Date: 20100710
  Serious: No
  Sender: FDA-Public Use
  Company Number: US-ALLERGAN-200409504

PATIENT
  Age: 51 Year
  Sex: Female
  Weight: 54.545 kg

DRUGS (1)
  1. BOTOX COSMETIC [Suspect]
     Indication: SKIN WRINKLING
     Dosage: 28UNITS, PRN
     Route: 030

REACTIONS (5)
  - ASTHENOPIA [None]
  - DRUG INEFFECTIVE [None]
  - EYELID OEDEMA [None]
  - LACRIMATION INCREASED [None]
  - SWELLING FACE [None]
